FAERS Safety Report 10087245 (Version 1)
Quarter: 2014Q2

REPORT INFORMATION
  Report Type: Spontaneous
  Country: IN (occurrence: IN)
  Receive Date: 20140418
  Receipt Date: 20140418
  Transmission Date: 20141212
  Serious: Yes (Hospitalization)
  Sender: FDA-Public Use
  Company Number: PHHY2014IN044022

PATIENT
  Age: 41 Year
  Sex: Male

DRUGS (10)
  1. LAMIVUDINE [Suspect]
     Indication: ANTIRETROVIRAL THERAPY
  2. EFAVIRENZ [Suspect]
     Indication: ANTIRETROVIRAL THERAPY
  3. NEVIRAPINE [Suspect]
     Indication: ANTIRETROVIRAL THERAPY
  4. RIFAMPICIN [Suspect]
  5. ISONIAZID [Suspect]
  6. ETHAMBUTOL [Suspect]
  7. PYRAZINAMIDE [Suspect]
  8. STAVUDINE [Suspect]
     Indication: ANTIRETROVIRAL THERAPY
  9. ZIDOVUDINE [Suspect]
     Indication: ANTIRETROVIRAL THERAPY
  10. STREPTOMYCIN [Suspect]

REACTIONS (10)
  - Immune reconstitution inflammatory syndrome associated tuberculosis [Recovering/Resolving]
  - Meningitis tuberculous [Recovering/Resolving]
  - Loss of consciousness [Recovering/Resolving]
  - Hemiparesis [Recovering/Resolving]
  - Dysarthria [Recovering/Resolving]
  - Abnormal behaviour [Recovering/Resolving]
  - Headache [Recovering/Resolving]
  - Tuberculosis of central nervous system [Recovering/Resolving]
  - Anaemia [Recovering/Resolving]
  - Disease recurrence [Unknown]
